FAERS Safety Report 12436662 (Version 1)
Quarter: 2016Q2

REPORT INFORMATION
  Report Type: Spontaneous
  Country: GB (occurrence: GB)
  Receive Date: 20160606
  Receipt Date: 20160606
  Transmission Date: 20160815
  Serious: Yes (Other)
  Sender: FDA-Public Use
  Company Number: GB-ACCORD-041042

PATIENT
  Sex: Female

DRUGS (4)
  1. DEPO-MEDRONE [Concomitant]
     Active Substance: METHYLPREDNISOLONE
     Dosage: 120 MG, UNK
     Route: 030
  2. METHOTREXATE [Suspect]
     Active Substance: METHOTREXATE
     Indication: RHEUMATOID ARTHRITIS
     Dosage: INITIALLY RECEIVED 2.5 MG TWO TIMES IN 1ST WEEK, THEN 2.5 MG 5 TABLETS WEEKLY.
  3. LODINE SR [Concomitant]
     Dosage: 600 MG ONCE A DAY
  4. ACETAMINOPHEN AND CODEINE [Concomitant]
     Active Substance: ACETAMINOPHEN\CODEINE PHOSPHATE
     Indication: PAIN
     Dosage: 2 TABLETS UP TO FOUR TIMES A DAY
     Dates: start: 200503

REACTIONS (2)
  - Liver disorder [Unknown]
  - Drug intolerance [Unknown]
